FAERS Safety Report 7511319-X (Version None)
Quarter: 2011Q2

REPORT INFORMATION
  Report Type: 
  Country: None (occurrence: None)
  Receive Date: 20110531
  Receipt Date: 20110516
  Transmission Date: 20111010
  Serious: Yes (Hospitalization, Other)
  Sender: FDA-Public Use
  Company Number: US-BAYER-201037821NA

PATIENT
  Age: 22 Year
  Sex: Female
  Weight: 127 kg

DRUGS (14)
  1. ZYRTEC [Concomitant]
  2. ASTELIN [Concomitant]
     Indication: MULTIPLE ALLERGIES
     Dosage: 2 PUFF(S), CONT
     Route: 045
  3. FLONASE [Concomitant]
  4. ALBUTEROL SULFATE AUTOHALER [Concomitant]
     Dosage: 1 PUFF(S), PRN
     Route: 045
  5. MAXALT [Concomitant]
     Indication: HEADACHE
     Dosage: UNK UNK, PRN
     Route: 048
  6. PHENERGAN HCL [Concomitant]
     Indication: NAUSEA
     Dosage: UNK UNK, PRN
     Route: 054
  7. YASMIN [Suspect]
     Indication: PREMENSTRUAL SYNDROME
  8. TOPAMAX [Concomitant]
     Indication: HEADACHE
     Dosage: UNK UNK, CONT
     Route: 048
     Dates: start: 20080805
  9. ALLERX [HYOSCINE METHONITRATE,PSEUDOEPHEDRINE HYDROCHLORIDE] [Concomitant]
     Dosage: UNK
     Dates: start: 20080805
  10. TREXIMET [Concomitant]
     Indication: MIGRAINE
     Dosage: UNK
     Route: 048
     Dates: start: 20080805
  11. ELAVIL [Concomitant]
  12. YASMIN [Suspect]
     Indication: MENSTRUATION IRREGULAR
     Dosage: UNK UNK, QD
     Route: 048
     Dates: start: 20050101, end: 20100101
  13. YAZ [Suspect]
  14. LORTAB [Concomitant]
     Indication: PAIN
     Dosage: UNK UNK, PRN
     Route: 048

REACTIONS (10)
  - VOMITING [None]
  - NAUSEA [None]
  - FOOD INTOLERANCE [None]
  - ANASTOMOTIC STENOSIS [None]
  - CHOLELITHIASIS [None]
  - RETCHING [None]
  - HYPOAESTHESIA [None]
  - CHOLECYSTITIS CHRONIC [None]
  - MIGRAINE [None]
  - ABDOMINAL PAIN UPPER [None]
